FAERS Safety Report 5321264-6 (Version None)
Quarter: 2007Q2

REPORT INFORMATION
  Report Type: 
  Country: None (occurrence: None)
  Receive Date: 20070504
  Receipt Date: 20070424
  Transmission Date: 20071010
  Serious: Yes (Hospitalization)
  Sender: FDA-Public Use
  Company Number: SPV1-2007-02321

PATIENT
  Age: 19 Year
  Sex: Female
  Weight: 56.7 kg

DRUGS (2)
  1. ADDERALL XR (AMPHETAMINE ASPARTATE, AMPHETAMINE SULFATE, DEXTROAMPHETA [Suspect]
     Indication: DISTURBANCE IN ATTENTION
     Dates: start: 20061001, end: 20070220
  2. EFFEXOR /01233801/ (VENLAFAXINE) [Concomitant]

REACTIONS (10)
  - ABNORMAL BEHAVIOUR [None]
  - BLEPHAROSPASM [None]
  - BLOOD PRESSURE INCREASED [None]
  - DYSKINESIA [None]
  - HEART RATE INCREASED [None]
  - HYPOTENSION [None]
  - INCOHERENT [None]
  - PSYCHOTIC DISORDER [None]
  - THINKING ABNORMAL [None]
  - TIC [None]
